FAERS Safety Report 6573049-0 (Version None)
Quarter: 2010Q1

REPORT INFORMATION
  Report Type: 
  Country: None (occurrence: None)
  Receive Date: 20100208
  Receipt Date: 20100126
  Transmission Date: 20100710
  Serious: Yes (Other)
  Sender: FDA-Public Use
  Company Number: DE-BAYER-200943420GPV

PATIENT
  Sex: Female

DRUGS (1)
  1. MIRENA [Suspect]
     Indication: DRUG USE FOR UNKNOWN INDICATION
     Route: 015
     Dates: start: 20070801, end: 20091117

REACTIONS (13)
  - ANXIETY [None]
  - ARRHYTHMIA [None]
  - BACK PAIN [None]
  - DEPRESSION [None]
  - DIZZINESS [None]
  - FATIGUE [None]
  - LOSS OF LIBIDO [None]
  - MUSCLE TIGHTNESS [None]
  - PALPITATIONS [None]
  - PARAESTHESIA [None]
  - RESTLESSNESS [None]
  - SOMNOLENCE [None]
  - TREMOR [None]
